FAERS Safety Report 20768538 (Version 1)
Quarter: 2022Q2

REPORT INFORMATION
  Report Type: Spontaneous
  Country: CN (occurrence: None)
  Receive Date: 20220429
  Receipt Date: 20220429
  Transmission Date: 20220720
  Serious: Yes (Other)
  Sender: FDA-Public Use
  Company Number: 2022A164176

PATIENT
  Age: 49 Year
  Sex: Female

DRUGS (1)
  1. FASLODEX [Suspect]
     Active Substance: FULVESTRANT
     Route: 030
     Dates: start: 20220224

REACTIONS (5)
  - Metastases to bone [Unknown]
  - Metastases to lymph nodes [Unknown]
  - Insomnia [Unknown]
  - Groin pain [Unknown]
  - Neuralgia [Unknown]
